FAERS Safety Report 9069645 (Version 2)
Quarter: 2014Q1

REPORT INFORMATION
  Report Type: Report from Study
  Country: US (occurrence: US)
  Receive Date: 20130215
  Receipt Date: 20140214
  Transmission Date: 20141002
  Serious: Yes (Hospitalization, Disabling, Other)
  Sender: FDA-Public Use
  Company Number: US-US-EMD SERONO, INC.-7193051

PATIENT
  Age: 58 Year
  Sex: Male

DRUGS (3)
  1. REBIF [Suspect]
     Indication: MULTIPLE SCLEROSIS
     Route: 058
     Dates: start: 20070720
  2. SOLU MEDROL [Concomitant]
     Indication: PRODUCT USED FOR UNKNOWN INDICATION
  3. ADVIL                              /00109201/ [Concomitant]
     Indication: PREMEDICATION

REACTIONS (4)
  - Wheelchair user [Not Recovered/Not Resolved]
  - Urinary tract infection [Unknown]
  - Injection site infection [Recovered/Resolved]
  - Injection site abscess [Unknown]
